FAERS Safety Report 12042207 (Version 1)
Quarter: 2016Q1

REPORT INFORMATION
  Report Type: Spontaneous
  Country: SI (occurrence: SI)
  Receive Date: 20160208
  Receipt Date: 20160208
  Transmission Date: 20160526
  Serious: Yes (Hospitalization, Disabling)
  Sender: FDA-Public Use
  Company Number: SI-JNJFOC-20160205684

PATIENT
  Age: 80 Year
  Sex: Female
  Weight: 70 kg

DRUGS (5)
  1. VASILIP [Concomitant]
     Dosage: DOSE: 20 MEQ/DL
     Route: 065
  2. XARELTO [Suspect]
     Active Substance: RIVAROXABAN
     Indication: ATRIAL FIBRILLATION
     Route: 048
     Dates: start: 20151207, end: 20160116
  3. DILATREND [Concomitant]
     Active Substance: CARVEDILOL
     Route: 065
  4. XARELTO [Suspect]
     Active Substance: RIVAROXABAN
     Indication: CEREBROVASCULAR ACCIDENT PROPHYLAXIS
     Route: 048
     Dates: start: 20151207, end: 20160116
  5. DIOVAN [Concomitant]
     Active Substance: VALSARTAN
     Route: 065

REACTIONS (3)
  - Paraplegia [Not Recovered/Not Resolved]
  - Hypotonia [Not Recovered/Not Resolved]
  - Extradural haematoma [Not Recovered/Not Resolved]

NARRATIVE: CASE EVENT DATE: 20160116
